FAERS Safety Report 25874040 (Version 1)
Quarter: 2025Q4

REPORT INFORMATION
  Report Type: Spontaneous
  Country: US (occurrence: US)
  Receive Date: 20251002
  Receipt Date: 20251002
  Transmission Date: 20260117
  Serious: Yes (Hospitalization, Other)
  Sender: SANOFI AVENTIS
  Company Number: US-SANOFI-02669432

PATIENT
  Age: 7 Year
  Sex: Female

DRUGS (2)
  1. DUPIXENT [Suspect]
     Active Substance: DUPILUMAB
     Indication: Eczema
     Dosage: 300 MG
     Dates: start: 202403, end: 202409
  2. TACROLIMUS [Concomitant]
     Active Substance: TACROLIMUS
     Indication: Heart transplant

REACTIONS (16)
  - Post transplant lymphoproliferative disorder [Unknown]
  - Thrombotic microangiopathy [Unknown]
  - Chronic kidney disease [Unknown]
  - Bronchiectasis [Unknown]
  - Hospitalisation [Unknown]
  - Molluscum contagiosum [Unknown]
  - Staphylococcal infection [Unknown]
  - Blood pressure increased [Unknown]
  - Gait inability [Unknown]
  - Primary ciliary dyskinesia [Unknown]
  - Infection [Recovered/Resolved]
  - Myalgia [Unknown]
  - Arthritis [Unknown]
  - Swelling face [Unknown]
  - Eczema [Recovered/Resolved]
  - Arthralgia [Unknown]

NARRATIVE: CASE EVENT DATE: 20240101
